FAERS Safety Report 9958631 (Version 2)
Quarter: 2014Q1

REPORT INFORMATION
  Report Type: Spontaneous
  Country: VN (occurrence: VN)
  Receive Date: 20140305
  Receipt Date: 20140305
  Transmission Date: 20141002
  Serious: Yes (Death, Hospitalization)
  Sender: FDA-Public Use
  Company Number: VN-ROCHE-1331399

PATIENT
  Sex: 0

DRUGS (2)
  1. CAPECITABINE [Suspect]
     Indication: GASTROINTESTINAL CARCINOMA
     Route: 065
  2. CAPECITABINE [Suspect]
     Dosage: 24 PILLS PER 14 DAYS
     Route: 065

REACTIONS (2)
  - Disease progression [Fatal]
  - Palmar-plantar erythrodysaesthesia syndrome [Recovered/Resolved]
